FAERS Safety Report 5971094-7 (Version None)
Quarter: 2008Q4

REPORT INFORMATION
  Report Type: 
  Country: None (occurrence: None)
  Receive Date: 20081128
  Receipt Date: 20081117
  Transmission Date: 20090506
  Serious: Yes (Hospitalization, Other)
  Sender: FDA-Public Use
  Company Number: GB-BAYER-200812756BNE

PATIENT
  Age: 37 Year
  Sex: Female

DRUGS (3)
  1. MIRENA [Suspect]
     Indication: CONTRACEPTION
     Route: 015
     Dates: start: 20030601
  2. BRICANYL [Concomitant]
     Indication: DRUG USE FOR UNKNOWN INDICATION
  3. SYMBICORT [Concomitant]
     Indication: DRUG USE FOR UNKNOWN INDICATION

REACTIONS (2)
  - BREAST CANCER RECURRENT [None]
  - NO ADVERSE EVENT [None]
